APPROVED DRUG PRODUCT: ACETYLCYSTEINE
Active Ingredient: ACETYLCYSTEINE
Strength: 6GM/30ML (200MG/ML)
Dosage Form/Route: INJECTABLE;INTRAVENOUS
Application: A204797 | Product #001
Applicant: EXELA PHARMA SCIENCES LLC
Approved: Apr 15, 2021 | RLD: No | RS: No | Type: DISCN